FAERS Safety Report 21990965 (Version 1)
Quarter: 2023Q1

REPORT INFORMATION
  Report Type: Spontaneous
  Country: US (occurrence: US)
  Receive Date: 20230214
  Receipt Date: 20230214
  Transmission Date: 20230417
  Serious: No
  Sender: FDA-Public Use
  Company Number: US-SA-SAC20230210000211

PATIENT
  Age: 79 Year
  Sex: Female
  Weight: 75 kg

DRUGS (1)
  1. DUPIXENT [Suspect]
     Active Substance: DUPILUMAB
     Dosage: 300 MG QOW
     Route: 058

REACTIONS (11)
  - Fall [Recovering/Resolving]
  - Joint injury [Recovering/Resolving]
  - Arthralgia [Recovering/Resolving]
  - Peroneal nerve palsy [Recovering/Resolving]
  - Anxiety [Recovering/Resolving]
  - Amnesia [Recovering/Resolving]
  - Dyspnoea [Recovering/Resolving]
  - Blood pressure increased [Recovering/Resolving]
  - Heart rate abnormal [Recovering/Resolving]
  - Head injury [Recovering/Resolving]
  - Inappropriate schedule of product administration [Unknown]

NARRATIVE: CASE EVENT DATE: 20230131
